FAERS Safety Report 4279671-9 (Version None)
Quarter: 2004Q1

REPORT INFORMATION
  Report Type: 
  Country: None (occurrence: None)
  Receive Date: 20040127
  Receipt Date: 20040127
  Transmission Date: 20041129
  Serious: Yes (Hospitalization)
  Sender: FDA-Public Use
  Company Number: None

PATIENT
  Age: 72 Year
  Sex: Male
  Weight: 65.318 kg

DRUGS (17)
  1. PROCRIT 40000 U [Suspect]
     Indication: ANAEMIA
     Dosage: 40,000 WEEKLY SUBCUTANEOUS
     Route: 058
     Dates: start: 20040119, end: 20040410
  2. PROCRIT 40000 U [Suspect]
     Indication: NEOPLASM
     Dosage: 40,000 WEEKLY SUBCUTANEOUS
     Route: 058
     Dates: start: 20040119, end: 20040410
  3. COREG [Concomitant]
  4. LANOXIN [Concomitant]
  5. COZAAR [Concomitant]
  6. SYNTHROID [Concomitant]
  7. FLOMAX [Concomitant]
  8. ALDACTONE [Concomitant]
  9. PROTONIX [Concomitant]
  10. LIPITOR [Concomitant]
  11. PLAQUENIL [Concomitant]
  12. PREDNISONE [Concomitant]
  13. LACTULOSE [Concomitant]
  14. TEMAZEPAM [Concomitant]
  15. QUINAPRIL HCL [Concomitant]
  16. DARVOCET-N 100 [Concomitant]
  17. NITROGLYCERIN SL [Concomitant]

REACTIONS (4)
  - ABDOMINAL PAIN [None]
  - ANAL FISSURE [None]
  - CONSTIPATION [None]
  - URINARY RETENTION [None]
